FAERS Safety Report 8516172-3 (Version None)
Quarter: 2012Q3

REPORT INFORMATION
  Report Type: 
  Country: None (occurrence: None)
  Receive Date: 20120717
  Receipt Date: 20120712
  Transmission Date: 20120928
  Serious: Yes (Other)
  Sender: FDA-Public Use
  Company Number: CA-ROCHE-GNE314039

PATIENT
  Sex: Female
  Weight: 99.108 kg

DRUGS (4)
  1. XOLAIR [Suspect]
     Dosage: 300 MG, 1/MONTH
     Route: 058
     Dates: start: 20091229
  2. XOLAIR [Suspect]
     Dosage: 300 MG, Q2W
     Route: 058
     Dates: start: 20091202
  3. XOLAIR [Suspect]
     Route: 058
     Dates: start: 20110302
  4. XOLAIR [Suspect]
     Indication: ASTHMA
     Dosage: 300 MG, Q2W
     Route: 058
     Dates: start: 20080117

REACTIONS (8)
  - SERUM FERRITIN DECREASED [None]
  - UTERINE LEIOMYOMA [None]
  - FATIGUE [None]
  - BLOOD IRON DECREASED [None]
  - NASOPHARYNGITIS [None]
  - PULMONARY FIBROSIS [None]
  - DYSPNOEA [None]
  - APHONIA [None]
